FAERS Safety Report 12249539 (Version 1)
Quarter: 2016Q2

REPORT INFORMATION
  Report Type: Spontaneous
  Country: None (occurrence: None)
  Receive Date: 20160407
  Receipt Date: 20160407
  Transmission Date: 20160815
  Serious: No
  Sender: FDA-Public Use
  Company Number: None

PATIENT
  Age: 58 Year
  Sex: Female

DRUGS (1)
  1. AFINITOR [Suspect]
     Active Substance: EVEROLIMUS
     Indication: BREAST CANCER
     Route: 048
     Dates: start: 201504, end: 201604

REACTIONS (4)
  - Drug ineffective [None]
  - Dizziness [None]
  - Disease progression [None]
  - Therapy change [None]

NARRATIVE: CASE EVENT DATE: 20160406
